FAERS Safety Report 10868698 (Version 1)
Quarter: 2015Q1

REPORT INFORMATION
  Report Type: Spontaneous
  Country: GB (occurrence: GB)
  Receive Date: 20150225
  Receipt Date: 20150225
  Transmission Date: 20150721
  Serious: Yes (Disabling, Other)
  Sender: FDA-Public Use
  Company Number: GB-PFIZER INC-2015067247

PATIENT
  Age: 29 Year
  Sex: Female
  Weight: 104 kg

DRUGS (2)
  1. SERTRALINE HCL [Suspect]
     Active Substance: SERTRALINE HYDROCHLORIDE
     Indication: PANIC ATTACK
     Dosage: 50 MG, UNK
     Route: 048
  2. SERTRALINE HCL [Suspect]
     Active Substance: SERTRALINE HYDROCHLORIDE
     Dosage: 25 MG, UNK
     Route: 048

REACTIONS (7)
  - Headache [Unknown]
  - Abnormal dreams [Unknown]
  - Insomnia [Unknown]
  - Abnormal loss of weight [Unknown]
  - Crying [Unknown]
  - Withdrawal syndrome [Unknown]
  - Nausea [Unknown]

NARRATIVE: CASE EVENT DATE: 20110301
